FAERS Safety Report 24216671 (Version 1)
Quarter: 2024Q3

REPORT INFORMATION
  Report Type: Spontaneous
  Country: US (occurrence: US)
  Receive Date: 20240816
  Receipt Date: 20240816
  Transmission Date: 20241017
  Serious: No
  Sender: JOHNSON AND JOHNSON
  Company Number: US-JNJFOC-20240772301

PATIENT
  Sex: Female

DRUGS (2)
  1. TYLENOL 8 HR ARTHRITIS PAIN [Suspect]
     Active Substance: ACETAMINOPHEN
     Indication: Arthritis
     Dosage: SHE TOOK THEM 4 OR 5 OF THEM A DAY BUT SOMETIMES IT CAN BE JUST ONE. SOMETIMES IT CAN BE 2
     Route: 065
  2. TYLENOL EXTRA STRENGTH [Suspect]
     Active Substance: ACETAMINOPHEN
     Indication: Arthritis
     Dosage: TAKE 1 SOME TIME 2
     Route: 065

REACTIONS (2)
  - Product administration error [Unknown]
  - Product use in unapproved indication [Unknown]
